FAERS Safety Report 14108676 (Version 3)
Quarter: 2017Q4

REPORT INFORMATION
  Report Type: Not Available
  Country: US (occurrence: US)
  Receive Date: 20171019
  Receipt Date: 20171222
  Transmission Date: 20180321
  Serious: Yes (Other)
  Sender: FDA-Public Use
  Company Number: US-NEUROCRINE BIOSCIENCES INC.-2017NBI00734

PATIENT
  Age: 57 Year
  Sex: Female

DRUGS (8)
  1. INGREZZA [Suspect]
     Active Substance: VALBENAZINE
     Indication: PRODUCT USED FOR UNKNOWN INDICATION
     Route: 048
     Dates: start: 20170703, end: 20170710
  2. LITHIUM. [Concomitant]
     Active Substance: LITHIUM
  3. TOPAMAX [Concomitant]
     Active Substance: TOPIRAMATE
  4. INGREZZA [Suspect]
     Active Substance: VALBENAZINE
     Route: 048
     Dates: start: 20170711
  5. ANAFRANIL [Concomitant]
     Active Substance: CLOMIPRAMINE HYDROCHLORIDE
  6. PROVIGIL [Concomitant]
     Active Substance: MODAFINIL
  7. CLONAZEPAM. [Concomitant]
     Active Substance: CLONAZEPAM
  8. WELLBUTRIN [Concomitant]
     Active Substance: BUPROPION HYDROCHLORIDE

REACTIONS (8)
  - Tardive dyskinesia [Unknown]
  - Knee arthroplasty [Unknown]
  - Balance disorder [Unknown]
  - Mental status changes postoperative [Recovered/Resolved]
  - Intentional product misuse [Unknown]
  - Fatigue [Unknown]
  - Somnolence [Unknown]
  - Feeling abnormal [Unknown]

NARRATIVE: CASE EVENT DATE: 2017
